FAERS Safety Report 25479190 (Version 2)
Quarter: 2025Q3

REPORT INFORMATION
  Report Type: Spontaneous
  Country: CL (occurrence: CL)
  Receive Date: 20250625
  Receipt Date: 20250925
  Transmission Date: 20251020
  Serious: No
  Sender: ABBVIE
  Company Number: CL-ABBVIE-6342913

PATIENT

DRUGS (1)
  1. OZURDEX [Suspect]
     Active Substance: DEXAMETHASONE
     Indication: Product used for unknown indication
     Route: 050

REACTIONS (1)
  - No adverse event [Unknown]
